FAERS Safety Report 15116436 (Version 2)
Quarter: 2018Q3

REPORT INFORMATION
  Report Type: Spontaneous
  Country: IT (occurrence: IT)
  Receive Date: 20180706
  Receipt Date: 20180718
  Transmission Date: 20181010
  Serious: Yes (Other)
  Sender: FDA-Public Use
  Company Number: IT-ELI_LILLY_AND_COMPANY-IT201807001823

PATIENT
  Sex: Female

DRUGS (10)
  1. TAVOR (LORAZEPAM) [Concomitant]
     Active Substance: LORAZEPAM
     Indication: INSOMNIA
  2. CRESTOR [Concomitant]
     Active Substance: ROSUVASTATIN CALCIUM
     Indication: BLOOD CHOLESTEROL
  3. PRADAXA [Concomitant]
     Active Substance: DABIGATRAN ETEXILATE MESYLATE
     Indication: ANTICOAGULANT THERAPY
     Dosage: 1 DF, BID
  4. TRIATEC                            /00116401/ [Concomitant]
     Active Substance: ACETAMINOPHEN\CODEINE PHOSPHATE
     Indication: HYPERTENSION
  5. XANAX [Concomitant]
     Active Substance: ALPRAZOLAM
     Indication: INSOMNIA
  6. MEDROL [Concomitant]
     Active Substance: METHYLPREDNISOLONE
     Indication: RHEUMATOID ARTHRITIS
  7. TAVOR (LORAZEPAM) [Concomitant]
     Active Substance: LORAZEPAM
     Indication: INSOMNIA
  8. BISOPROLOL [Concomitant]
     Active Substance: BISOPROLOL
     Indication: PRODUCT USED FOR UNKNOWN INDICATION
  9. FORSTEO 250UG/ML [Suspect]
     Active Substance: TERIPARATIDE
     Indication: PRODUCT USED FOR UNKNOWN INDICATION
     Dosage: UNK UNK, UNKNOWN
     Route: 065
     Dates: start: 20180530, end: 20180626
  10. FLEIDERINA [Concomitant]
     Indication: ATRIAL FIBRILLATION

REACTIONS (23)
  - Pollakiuria [Recovering/Resolving]
  - Headache [Recovering/Resolving]
  - Renal disorder [Recovering/Resolving]
  - Insomnia [Unknown]
  - Fatigue [Unknown]
  - Myalgia [Recovering/Resolving]
  - Dizziness [Recovered/Resolved]
  - Urine odour abnormal [Recovering/Resolving]
  - Nervousness [Unknown]
  - Asthenia [Unknown]
  - Hypotension [Recovering/Resolving]
  - Erythema [Unknown]
  - Dysstasia [Unknown]
  - Heart rate increased [Recovering/Resolving]
  - Neck pain [Unknown]
  - Nausea [Unknown]
  - Hypokinesia [Unknown]
  - Pain in extremity [Unknown]
  - Malaise [Unknown]
  - Dry skin [Unknown]
  - Dizziness [Unknown]
  - Muscle spasms [Unknown]
  - Rheumatoid arthritis [Recovering/Resolving]
